FAERS Safety Report 9862603 (Version 2)
Quarter: 2014Q1

REPORT INFORMATION
  Report Type: Spontaneous
  Country: GB (occurrence: GB)
  Receive Date: 20140203
  Receipt Date: 20140310
  Transmission Date: 20141002
  Serious: Yes (Hospitalization)
  Sender: FDA-Public Use
  Company Number: PHFR2014GB001044

PATIENT
  Sex: 0

DRUGS (3)
  1. CICLOSPORIN [Suspect]
     Indication: OFF LABEL USE
     Dosage: UNK
  2. 5-FLUOROURACIL [Suspect]
     Indication: COLORECTAL CANCER
     Dosage: UNK
  3. LEUCOVORIN [Suspect]
     Indication: COLORECTAL CANCER
     Dosage: UNK

REACTIONS (2)
  - Condition aggravated [Recovering/Resolving]
  - Colorectal cancer [Recovering/Resolving]
